FAERS Safety Report 5204654-1 (Version None)
Quarter: 2006Q4

REPORT INFORMATION
  Report Type: 
  Country: None (occurrence: None)
  Receive Date: 20061026
  Receipt Date: 20060926
  Transmission Date: 20070319
  Serious: Yes (Other)
  Sender: FDA-Public Use
  Company Number: 2006117896

PATIENT
  Sex: Male

DRUGS (8)
  1. LYRICA [Suspect]
     Dates: start: 20060101
  2. PLAQUENIL [Concomitant]
  3. PROZAC [Concomitant]
  4. PREVACID [Concomitant]
  5. SEROQUEL [Concomitant]
  6. ZYPREXA [Concomitant]
  7. NORVASC [Concomitant]
  8. CLONIDINE [Concomitant]

REACTIONS (1)
  - DIPLOPIA [None]
